FAERS Safety Report 4823962-7 (Version None)
Quarter: 2005Q4

REPORT INFORMATION
  Report Type: 
  Country: None (occurrence: None)
  Receive Date: 20051109
  Receipt Date: 20051102
  Transmission Date: 20060501
  Serious: Yes (Other)
  Sender: FDA-Public Use
  Company Number: US-JNJFOC-20051101422

PATIENT
  Sex: Male
  Weight: 56.25 kg

DRUGS (1)
  1. RISPERDAL [Suspect]
     Indication: SCHIZOPHRENIA
     Dosage: VIA PERCUTANEOUS ENDOSCOPIC GASTROSTOMY TUBE
     Route: 050

REACTIONS (2)
  - COLON CANCER [None]
  - SCHIZOPHRENIA [None]
